FAERS Safety Report 6595426-4 (Version None)
Quarter: 2010Q1

REPORT INFORMATION
  Report Type: 
  Country: None (occurrence: None)
  Receive Date: 20100223
  Receipt Date: 20100216
  Transmission Date: 20100710
  Serious: Yes (Hospitalization)
  Sender: FDA-Public Use
  Company Number: US-WYE-H12632609

PATIENT
  Sex: Female
  Weight: 111 kg

DRUGS (3)
  1. DESVENLAFAXINE SUCCINATE MONOHYDRATE [Suspect]
     Indication: MAJOR DEPRESSION
     Route: 048
     Dates: start: 20091123
  2. IBUPROFEN [Concomitant]
     Indication: ARTHRITIS
     Dosage: UNSPECIFIED
     Dates: start: 20091109
  3. LISINOPRIL [Concomitant]
     Indication: HYPERTENSION
     Dosage: UNSPECIFIED
     Dates: start: 20050101

REACTIONS (1)
  - MENTAL DISORDER [None]
